FAERS Safety Report 4663682-5 (Version None)
Quarter: 2005Q2

REPORT INFORMATION
  Report Type: 
  Country: None (occurrence: None)
  Receive Date: 20050517
  Receipt Date: 20050510
  Transmission Date: 20051028
  Serious: Yes (Hospitalization, Other)
  Sender: FDA-Public Use
  Company Number: 05-05-0815

PATIENT
  Age: 84 Year
  Sex: Female

DRUGS (4)
  1. ALBUTEROL [Suspect]
     Indication: CHRONIC OBSTRUCTIVE PULMONARY DISEASE
     Dosage: SEE IMAGE
     Route: 055
  2. ALENDRONATE SODIUM [Concomitant]
  3. IPRATROPIUM BROMIDE [Concomitant]
  4. OXYGEN [Concomitant]

REACTIONS (4)
  - ACUTE MYOCARDIAL INFARCTION [None]
  - ATRIAL FIBRILLATION [None]
  - HEART RATE INCREASED [None]
  - VENTRICULAR HYPOKINESIA [None]
